FAERS Safety Report 13534987 (Version 1)
Quarter: 2017Q2

REPORT INFORMATION
  Report Type: Spontaneous
  Country: US (occurrence: US)
  Receive Date: 20170511
  Receipt Date: 20170511
  Transmission Date: 20170830
  Serious: No
  Sender: FDA-Public Use
  Company Number: US-TEVA-724552ACC

PATIENT
  Age: 53 Year
  Sex: Female
  Weight: 89.89 kg

DRUGS (1)
  1. CARISOPRODOL. [Suspect]
     Active Substance: CARISOPRODOL
     Indication: PAIN

REACTIONS (1)
  - Drug screen negative [Recovered/Resolved]

NARRATIVE: CASE EVENT DATE: 20161013
